FAERS Safety Report 6639222-8 (Version None)
Quarter: 2010Q1

REPORT INFORMATION
  Report Type: 
  Country: None (occurrence: None)
  Receive Date: 20100317
  Receipt Date: 20100309
  Transmission Date: 20100710
  Serious: Yes (Death)
  Sender: FDA-Public Use
  Company Number: US-GILEAD-2010-0027309

PATIENT
  Sex: Female

DRUGS (17)
  1. LETAIRIS [Suspect]
     Indication: PULMONARY ARTERIAL HYPERTENSION
     Route: 048
     Dates: start: 20090417
  2. FUROSEMIDE [Concomitant]
  3. METOPROLOL TARTRATE [Concomitant]
  4. NITROGLYCERIN [Concomitant]
  5. WARFARIN SODIUM [Concomitant]
  6. SIMVASTATIN [Concomitant]
  7. NIACIN [Concomitant]
  8. FENOFIBRATE [Concomitant]
  9. FOSAMAX [Concomitant]
  10. CALCIUM/VITAMIN D [Concomitant]
  11. SYNTHROID [Concomitant]
  12. LOVAZA [Concomitant]
  13. PRILOSEC [Concomitant]
  14. TYLENOL-500 [Concomitant]
  15. ALPRAZOLAM [Concomitant]
  16. TRAMADOL HCL [Concomitant]
  17. M.V.I. [Concomitant]

REACTIONS (1)
  - COLON CANCER METASTATIC [None]
